FAERS Safety Report 11077248 (Version 2)
Quarter: 2015Q3

REPORT INFORMATION
  Report Type: Report from Study
  Country: US (occurrence: US)
  Receive Date: 20150429
  Receipt Date: 20150713
  Transmission Date: 20151125
  Serious: Yes (Hospitalization)
  Sender: FDA-Public Use
  Company Number: US-ACTELION-A-US2014-103659

PATIENT
  Age: 22 Year
  Sex: Female

DRUGS (4)
  1. VELETRI [Suspect]
     Active Substance: EPOPROSTENOL
     Dosage: 30 NG/KG, PER MIN
     Route: 042
  2. VELETRI [Suspect]
     Active Substance: EPOPROSTENOL
     Dosage: 9 NG/KG, PER MIN
     Route: 042
  3. ADCIRCA [Concomitant]
     Active Substance: TADALAFIL
  4. VELETRI [Suspect]
     Active Substance: EPOPROSTENOL
     Indication: PULMONARY ARTERIAL HYPERTENSION
     Dosage: 7 NG/KG, PER MIN
     Route: 042
     Dates: start: 20140730

REACTIONS (20)
  - Headache [Recovered/Resolved]
  - Myalgia [Unknown]
  - Dizziness [Recovered/Resolved]
  - Nausea [Unknown]
  - Vomiting [Unknown]
  - Pain in jaw [Unknown]
  - Dyspepsia [Unknown]
  - Chest pain [Unknown]
  - Rash erythematous [Recovered/Resolved]
  - Device occlusion [Unknown]
  - Device alarm issue [Unknown]
  - Diarrhoea [Unknown]
  - Musculoskeletal pain [Unknown]
  - Bronchitis [Unknown]
  - Condition aggravated [Unknown]
  - Anxiety [Unknown]
  - Flushing [Recovered/Resolved]
  - Catheter site erythema [Unknown]
  - Dyspnoea [Recovering/Resolving]
  - Product deposit [Unknown]
